FAERS Safety Report 19883632 (Version 3)
Quarter: 2021Q4

REPORT INFORMATION
  Report Type: Report from Study
  Country: FR (occurrence: FR)
  Receive Date: 20210927
  Receipt Date: 20211101
  Transmission Date: 20220303
  Serious: Yes (Hospitalization, Other)
  Sender: FDA-Public Use
  Company Number: FR-BRISTOL-MYERS SQUIBB COMPANY-BMS-2021-095413

PATIENT
  Age: 53 Year
  Sex: Male
  Weight: 70 kg

DRUGS (2)
  1. NIVOLUMAB [Suspect]
     Active Substance: NIVOLUMAB
     Indication: Thymoma malignant
     Dosage: 240 MILLIGRAM, Q2WK
     Route: 042
     Dates: start: 20210820, end: 20210902
  2. IPILIMUMAB [Suspect]
     Active Substance: IPILIMUMAB
     Indication: Thymoma malignant
     Dosage: 70 MILLIGRAM, Q6WK
     Route: 042
     Dates: start: 20210820, end: 20210902

REACTIONS (1)
  - Hepatic cytolysis [Not Recovered/Not Resolved]

NARRATIVE: CASE EVENT DATE: 20210911
